FAERS Safety Report 4765355-7 (Version None)
Quarter: 2005Q3

REPORT INFORMATION
  Report Type: 
  Country: None (occurrence: None)
  Receive Date: 20050909
  Receipt Date: 20050711
  Transmission Date: 20060218
  Serious: Yes (Hospitalization, Other)
  Sender: FDA-Public Use
  Company Number: US-MERCK-0507USA01630

PATIENT
  Age: 33 Year
  Sex: Female
  Weight: 82 kg

DRUGS (4)
  1. ZOLOFT [Concomitant]
     Indication: DEPRESSION
     Route: 048
     Dates: start: 19981201, end: 20020101
  2. VIOXX [Suspect]
     Indication: FIBROMYALGIA
     Route: 048
     Dates: start: 20020101, end: 20020101
  3. ULTRACET [Concomitant]
     Route: 048
     Dates: start: 20020401
  4. CELEBREX [Concomitant]
     Route: 048

REACTIONS (16)
  - ANTIPHOSPHOLIPID SYNDROME [None]
  - BRONCHITIS ACUTE [None]
  - CONJUNCTIVITIS [None]
  - COUGH [None]
  - DEPRESSION [None]
  - DYSPNOEA [None]
  - GASTROOESOPHAGEAL REFLUX DISEASE [None]
  - INJURY [None]
  - IRON DEFICIENCY [None]
  - OBESITY [None]
  - PALPITATIONS [None]
  - POST-TRAUMATIC STRESS DISORDER [None]
  - PULMONARY EMBOLISM [None]
  - STOMACH DISCOMFORT [None]
  - THROMBOSIS [None]
  - UPPER RESPIRATORY TRACT INFECTION [None]
